FAERS Safety Report 10496416 (Version 3)
Quarter: 2016Q2

REPORT INFORMATION
  Report Type: Report from Study
  Country: KR (occurrence: KR)
  Receive Date: 20141003
  Receipt Date: 20160419
  Transmission Date: 20160815
  Serious: Yes (Hospitalization, Other)
  Sender: FDA-Public Use
  Company Number: KR-GILEAD-2014-0116799

PATIENT
  Age: 76 Year
  Sex: Female
  Weight: 56.2 kg

DRUGS (25)
  1. LAMINA-G [Concomitant]
     Indication: GASTROOESOPHAGEAL REFLUX DISEASE
  2. VESICARE [Concomitant]
     Active Substance: SOLIFENACIN SUCCINATE
     Indication: BLADDER DYSFUNCTION
  3. LIVACT                             /00847901/ [Concomitant]
     Active Substance: ISOLEUCINE\LEUCINE\VALINE
     Indication: HEPATIC CIRRHOSIS
     Dosage: UNK
     Route: 048
     Dates: start: 20140417
  4. MAGNESIUM OXIDE. [Concomitant]
     Active Substance: MAGNESIUM OXIDE
     Indication: CONSTIPATION
     Dosage: 250 MG, UNK
     Route: 048
     Dates: start: 20140923, end: 20140925
  5. DUPHALAC [Concomitant]
     Active Substance: LACTULOSE
     Indication: CONSTIPATION
     Dosage: 60 ML, UNK
     Dates: start: 20140923
  6. RABIET [Concomitant]
     Dosage: UNK
  7. LASIX [Concomitant]
     Active Substance: FUROSEMIDE
     Indication: ASCITES
     Dosage: 20 MG, UNK
     Route: 048
     Dates: start: 20140409
  8. SYLCON [Concomitant]
     Indication: CONSTIPATION
     Dosage: 625 MG, UNK
     Dates: start: 20140501, end: 20140610
  9. LAMINA-G [Concomitant]
     Indication: GASTRITIS
     Dosage: 20 ML, UNK
     Route: 048
     Dates: start: 20140409
  10. ULCERLMIN [Concomitant]
     Active Substance: SUCRALFATE
     Dosage: 15 ML, UNK
     Dates: start: 20140414
  11. PARIET [Concomitant]
     Active Substance: RABEPRAZOLE SODIUM
     Indication: OESOPHAGITIS
     Dosage: 10 MG, UNK
     Route: 048
     Dates: start: 20140916, end: 20140916
  12. ENAFON [Concomitant]
     Dosage: UNK
     Dates: start: 20140427, end: 20140509
  13. AGIOFIBE                           /00091301/ [Concomitant]
     Indication: CONSTIPATION
     Dosage: UNK
     Dates: start: 20140610
  14. TENOFOVIR DISOPROXIL FUMARATE. [Suspect]
     Active Substance: TENOFOVIR DISOPROXIL FUMARATE
     Indication: HEPATITIS B
     Dosage: 300 MG, QD
     Route: 048
     Dates: start: 20140412
  15. VESICARE [Concomitant]
     Active Substance: SOLIFENACIN SUCCINATE
     Indication: NEUROGENIC BLADDER
     Dosage: 1 DF, UNK
     Route: 048
     Dates: start: 20140711
  16. HARNAL [Concomitant]
     Active Substance: TAMSULOSIN HYDROCHLORIDE
     Indication: BLADDER DYSFUNCTION
  17. ALDACTONE [Concomitant]
     Active Substance: SPIRONOLACTONE
     Dosage: 25 MG, UNK
     Dates: start: 20140409
  18. NEXIUM [Concomitant]
     Active Substance: ESOMEPRAZOLE MAGNESIUM
     Indication: GASTROOESOPHAGEAL REFLUX DISEASE
  19. TRIDOL [Concomitant]
     Dosage: UNK
     Route: 048
     Dates: start: 20140917, end: 20140925
  20. HARNAL [Concomitant]
     Active Substance: TAMSULOSIN HYDROCHLORIDE
     Indication: NEUROGENIC BLADDER
     Dosage: 1 DF, UNK
     Route: 048
     Dates: start: 20140711
  21. RABIET [Concomitant]
     Indication: GASTROOESOPHAGEAL REFLUX DISEASE
     Dosage: 2 DF, UNK
     Route: 048
     Dates: start: 20140509, end: 20140515
  22. ACTONEL EC [Concomitant]
     Dosage: UNK
     Route: 048
     Dates: start: 20140922, end: 20140925
  23. LACIDOFIL [Concomitant]
     Active Substance: LACTOBACILLUS ACIDOPHILUS\LACTOBACILLUS RHAMNOSUS
     Indication: CONSTIPATION
     Dosage: UNK
     Route: 048
     Dates: start: 20140509
  24. NEXIUM [Concomitant]
     Active Substance: ESOMEPRAZOLE MAGNESIUM
     Indication: GASTRITIS
     Dosage: 40 MG, UNK
     Route: 048
     Dates: start: 20140410, end: 20140925
  25. RESOLOR [Concomitant]
     Active Substance: PRUCALOPRIDE SUCCINATE
     Indication: CONSTIPATION
     Dosage: 1 DF, UNK
     Route: 048
     Dates: start: 20140509

REACTIONS (3)
  - Bladder dysfunction [Not Recovered/Not Resolved]
  - Dyspepsia [Recovered/Resolved]
  - Osteoporosis [Not Recovered/Not Resolved]

NARRATIVE: CASE EVENT DATE: 20140711
